FAERS Safety Report 13938856 (Version 2)
Quarter: 2017Q3

REPORT INFORMATION
  Report Type: Spontaneous
  Country: SG (occurrence: SG)
  Receive Date: 20170906
  Receipt Date: 20170914
  Transmission Date: 20171127
  Serious: Yes (Life-Threatening, Hospitalization)
  Sender: FDA-Public Use
  Company Number: SG-JNJFOC-JASIN2462

PATIENT
  Age: 5 Week
  Sex: Male
  Weight: 4.7 kg

DRUGS (2)
  1. LOPERAMIDE [Suspect]
     Active Substance: LOPERAMIDE
     Indication: GASTROENTERITIS
     Route: 048
  2. LOPERAMIDE [Suspect]
     Active Substance: LOPERAMIDE
     Indication: DIARRHOEA
     Route: 048

REACTIONS (16)
  - Extrasystoles [Recovered/Resolved]
  - Bradycardia [Recovered/Resolved]
  - Toxicity to various agents [Recovered/Resolved]
  - Cyanosis [Recovered/Resolved]
  - Encephalopathy [Recovered/Resolved]
  - Hypertonia [Recovered/Resolved]
  - Miosis [Recovered/Resolved]
  - Depressed level of consciousness [Recovered/Resolved]
  - Coma [Recovered/Resolved]
  - Opisthotonus [Recovered/Resolved]
  - Respiratory depression [Recovered/Resolved]
  - Somnolence [Recovered/Resolved]
  - Pyrexia [Recovered/Resolved]
  - Dystonia [Recovered/Resolved]
  - Hyperreflexia [Recovered/Resolved]
  - Apnoea [Recovered/Resolved]
